FAERS Safety Report 5154390-5 (Version None)
Quarter: 2006Q4

REPORT INFORMATION
  Report Type: 
  Country: None (occurrence: None)
  Receive Date: 20061114
  Receipt Date: 20061031
  Transmission Date: 20070319
  Serious: Yes (Congenital Anomaly)
  Sender: FDA-Public Use
  Company Number: 2006134061

PATIENT
  Sex: 0

DRUGS (1)
  1. SERTRALINE [Suspect]

REACTIONS (2)
  - DRUG EXPOSURE DURING PREGNANCY [None]
  - HEART DISEASE CONGENITAL [None]
